FAERS Safety Report 21895829 (Version 1)
Quarter: 2023Q1

REPORT INFORMATION
  Report Type: Spontaneous
  Country: US (occurrence: US)
  Receive Date: 20230123
  Receipt Date: 20230123
  Transmission Date: 20230418
  Serious: No
  Sender: FDA-Public Use
  Company Number: US-ELI_LILLY_AND_COMPANY-US202301005260

PATIENT
  Age: 58 Year
  Sex: Female

DRUGS (2)
  1. VERZENIO [Suspect]
     Active Substance: ABEMACICLIB
     Indication: Breast cancer metastatic
     Dosage: 150 MG, UNKNOWN
     Route: 048
     Dates: start: 20221223
  2. ARIMIDEX [Concomitant]
     Active Substance: ANASTROZOLE
     Indication: Product used for unknown indication
     Dates: start: 20221223

REACTIONS (5)
  - Swelling of eyelid [Unknown]
  - Eye discharge [Unknown]
  - Pain of skin [Unknown]
  - Eyelid margin crusting [Unknown]
  - Eye infection [Unknown]

NARRATIVE: CASE EVENT DATE: 20230106
